FAERS Safety Report 9486987 (Version 1)
Quarter: 2013Q3

REPORT INFORMATION
  Report Type: Report from Study
  Country: FR (occurrence: FR)
  Receive Date: 20130829
  Receipt Date: 20130829
  Transmission Date: 20140515
  Serious: Yes (Hospitalization)
  Sender: FDA-Public Use
  Company Number: FR-GLAXOSMITHKLINE-B0834653C

PATIENT
  Age: 85 Year
  Sex: Male

DRUGS (4)
  1. PAZOPANIB [Suspect]
     Indication: GASTROINTESTINAL STROMAL TUMOUR
     Dosage: 800MG PER DAY
     Route: 048
     Dates: start: 20120828, end: 20120921
  2. ACEBUTOLOL [Concomitant]
  3. KARDEGIC [Concomitant]
  4. TAHOR [Concomitant]

REACTIONS (3)
  - Hepatitis fulminant [Recovered/Resolved]
  - Acute coronary syndrome [Recovered/Resolved]
  - Accidental overdose [Recovered/Resolved]
